FAERS Safety Report 12352567 (Version 1)
Quarter: 2016Q2

REPORT INFORMATION
  Report Type: Spontaneous
  Country: RO (occurrence: RO)
  Receive Date: 20160510
  Receipt Date: 20160510
  Transmission Date: 20160815
  Serious: Yes (Life-Threatening, Hospitalization, Disabling, Other)
  Sender: FDA-Public Use
  Company Number: RO-ABBVIE-16K-135-1622693-00

PATIENT
  Age: 66 Year
  Sex: Male
  Weight: 60 kg

DRUGS (5)
  1. HUMIRA [Suspect]
     Active Substance: ADALIMUMAB
     Indication: RHEUMATOID ARTHRITIS
     Route: 058
     Dates: start: 20150512, end: 20150916
  2. VIMOVO [Concomitant]
     Active Substance: ESOMEPRAZOLE MAGNESIUM\NAPROXEN
     Indication: RHEUMATOID ARTHRITIS
     Dosage: 500MG NAPROXEN/20MG ESOMEPRAZOL
     Route: 048
     Dates: start: 20140618, end: 20150916
  3. LEFLUNOMIDE. [Concomitant]
     Active Substance: LEFLUNOMIDE
     Indication: RHEUMATOID ARTHRITIS
     Route: 048
     Dates: start: 20140618, end: 20150916
  4. LEFLUNOMIDE. [Concomitant]
     Active Substance: LEFLUNOMIDE
     Dates: start: 20160412
  5. VIMOVO [Concomitant]
     Active Substance: ESOMEPRAZOLE MAGNESIUM\NAPROXEN
     Dates: start: 20160412

REACTIONS (11)
  - Chronic respiratory failure [Unknown]
  - Malnutrition [Unknown]
  - Lymphadenopathy mediastinal [Unknown]
  - Megacolon [Unknown]
  - Benign prostatic hyperplasia [Unknown]
  - Essential hypertension [Unknown]
  - Bronchitis chronic [Unknown]
  - Lung neoplasm [Unknown]
  - Pulmonary tuberculosis [Recovering/Resolving]
  - Polyarthritis [Unknown]
  - Microcytic anaemia [Unknown]

NARRATIVE: CASE EVENT DATE: 20150916
